FAERS Safety Report 5822771-X (Version None)
Quarter: 2008Q3

REPORT INFORMATION
  Report Type: 
  Country: None (occurrence: None)
  Receive Date: 20080725
  Receipt Date: 20071015
  Transmission Date: 20090109
  Serious: No
  Sender: FDA-Public Use
  Company Number: US-AMGEN-KDL248400

PATIENT
  Sex: Female
  Weight: 101.2 kg

DRUGS (5)
  1. PROCRIT [Suspect]
     Indication: ANAEMIA
     Dates: start: 20070601
  2. DIOVAN [Concomitant]
  3. CATAPRES [Concomitant]
  4. NEXIUM [Concomitant]
  5. TOPAMAX [Concomitant]

REACTIONS (2)
  - BACK PAIN [None]
  - SERUM FERRITIN DECREASED [None]
